FAERS Safety Report 5721089-3 (Version None)
Quarter: 2008Q2

REPORT INFORMATION
  Report Type: 
  Country: None (occurrence: None)
  Receive Date: 20080424
  Receipt Date: 20080411
  Transmission Date: 20081010
  Serious: Yes (Other)
  Sender: FDA-Public Use
  Company Number: 08H-167-0314169-00

PATIENT
  Age: 46 Year
  Sex: Female
  Weight: 94 kg

DRUGS (6)
  1. PROPOFOL [Suspect]
     Indication: GENERAL ANAESTHESIA
     Dosage: 0.5 UG/KG, INTRAVENOUS
     Route: 042
  2. REMIFENTANIL (REMIFENTANIL) [Suspect]
     Indication: GENERAL ANAESTHESIA
     Dosage: 6 UNIT, INTRAVENOUS
     Route: 042
  3. AMOXICILLIN [Concomitant]
  4. BRICANYL [Concomitant]
  5. CHLORAMPHENICOL [Concomitant]
  6. PULMICORT [Concomitant]

REACTIONS (29)
  - ACTIVITIES OF DAILY LIVING IMPAIRED [None]
  - AGGRESSION [None]
  - BRAIN INJURY [None]
  - CHILLS [None]
  - CLUMSINESS [None]
  - COUGH [None]
  - DIZZINESS [None]
  - FATIGUE [None]
  - FEELING HOT [None]
  - GAIT DISTURBANCE [None]
  - HALLUCINATION [None]
  - HEADACHE [None]
  - HEART RATE INCREASED [None]
  - ILL-DEFINED DISORDER [None]
  - INAPPROPRIATE AFFECT [None]
  - MALAISE [None]
  - MEMORY IMPAIRMENT [None]
  - MOTION SICKNESS [None]
  - MOVEMENT DISORDER [None]
  - MUSCLE DISORDER [None]
  - NERVOUS SYSTEM DISORDER [None]
  - PALPITATIONS [None]
  - PHARYNGOLARYNGEAL PAIN [None]
  - SEDATION [None]
  - SPEECH DISORDER [None]
  - SUICIDAL IDEATION [None]
  - SYNCOPE [None]
  - TREMOR [None]
  - VOMITING [None]
